FAERS Safety Report 6931333-2 (Version None)
Quarter: 2010Q3

REPORT INFORMATION
  Report Type: 
  Country: None (occurrence: None)
  Receive Date: 20100816
  Receipt Date: 20100730
  Transmission Date: 20110219
  Serious: Yes (Hospitalization)
  Sender: FDA-Public Use
  Company Number: DSA_43681_2010

PATIENT
  Sex: Male

DRUGS (13)
  1. DILZEM (DILTIAZEM - DILTIAZEM HYDROCHLORIDE) (120 MG, 90 MG, 90 MG, 12 [Suspect]
     Indication: ATRIAL FIBRILLATION
     Dosage: (120 MG QD ORAL), (90 MG BID ORAL), (90 MG TID ORAL), (120 MG BID ORAL)
     Route: 048
     Dates: start: 20100301, end: 20100401
  2. DILZEM (DILTIAZEM - DILTIAZEM HYDROCHLORIDE) (120 MG, 90 MG, 90 MG, 12 [Suspect]
     Indication: ATRIAL FLUTTER
     Dosage: (120 MG QD ORAL), (90 MG BID ORAL), (90 MG TID ORAL), (120 MG BID ORAL)
     Route: 048
     Dates: start: 20100301, end: 20100401
  3. RIFAMPICIN [Suspect]
     Indication: ARTHRITIS
     Dosage: (450 MG TID)
     Dates: start: 20100408, end: 20100706
  4. RIFAMPICIN [Suspect]
     Indication: POLYARTHRITIS
     Dosage: (450 MG TID)
     Dates: start: 20100408, end: 20100706
  5. INVEGA [Suspect]
     Indication: DEPRESSION
     Dosage: (3 MG QD ORAL), (6 MG QD ORAL)
     Route: 048
     Dates: start: 20100624, end: 20100704
  6. INVEGA [Suspect]
     Indication: DEPRESSION
     Dosage: (3 MG QD ORAL), (6 MG QD ORAL)
     Route: 048
     Dates: start: 20100705, end: 20100706
  7. SINTROM [Concomitant]
  8. LISINOPRIL [Concomitant]
  9. SUPRACYCLIN TABS [Concomitant]
  10. ESOMEPRAZOLE MAGNESIUM [Concomitant]
  11. HALDOL [Concomitant]
  12. MIRTAZAPINE [Concomitant]
  13. CLOMETHIAZOLE EDISILATE [Concomitant]

REACTIONS (6)
  - ACUTE PULMONARY OEDEMA [None]
  - CARDIAC FAILURE [None]
  - CONDITION AGGRAVATED [None]
  - DRUG INTERACTION [None]
  - MAJOR DEPRESSION [None]
  - TACHYCARDIA [None]
